FAERS Safety Report 13066385 (Version 2)
Quarter: 2017Q1

REPORT INFORMATION
  Report Type: Spontaneous
  Country: US (occurrence: US)
  Receive Date: 20161227
  Receipt Date: 20170207
  Transmission Date: 20170428
  Serious: Yes (Death, Hospitalization)
  Sender: FDA-Public Use
  Company Number: US-MALLINCKRODT-T201606638

PATIENT
  Age: 84 Year
  Sex: Male

DRUGS (1)
  1. H.P. ACTHAR [Suspect]
     Active Substance: CORTICOTROPIN
     Indication: POLYMYOSITIS
     Dosage: 80UNITS, TWICE A WEEK
     Route: 058
     Dates: start: 20160207, end: 20161209

REACTIONS (6)
  - Clostridium difficile colitis [Unknown]
  - Death [Fatal]
  - Atrial fibrillation [Unknown]
  - Sepsis [Unknown]
  - Megacolon [Unknown]
  - Respiratory failure [Unknown]
